FAERS Safety Report 10454220 (Version 12)
Quarter: 2015Q4

REPORT INFORMATION
  Report Type: Report from Study
  Country: DE (occurrence: DE)
  Receive Date: 20140915
  Receipt Date: 20151229
  Transmission Date: 20160304
  Serious: Yes (Hospitalization)
  Sender: FDA-Public Use
  Company Number: PHHY2014DE082313

PATIENT
  Age: 47 Year
  Sex: Male
  Weight: 130 kg

DRUGS (2)
  1. ILARIS [Suspect]
     Active Substance: CANAKINUMAB
     Indication: CRYOPYRIN ASSOCIATED PERIODIC SYNDROME
     Dosage: 150 MG, EVERY 3 WEEKS
     Route: 058
     Dates: start: 20100916, end: 20130303
  2. ILARIS [Suspect]
     Active Substance: CANAKINUMAB
     Dosage: 150 MG, EVERY 3 WEEKS
     Route: 058
     Dates: start: 201304, end: 20141007

REACTIONS (4)
  - Abscess [Not Recovered/Not Resolved]
  - Abscess [Recovered/Resolved]
  - Infection [Recovered/Resolved]
  - Erysipelas [Recovered/Resolved]

NARRATIVE: CASE EVENT DATE: 20130303
